FAERS Safety Report 4463219-X (Version None)
Quarter: 2004Q3

REPORT INFORMATION
  Report Type: 
  Country: None (occurrence: None)
  Receive Date: 20040930
  Receipt Date: 20031117
  Transmission Date: 20050211
  Serious: Yes (Hospitalization)
  Sender: FDA-Public Use
  Company Number: PHEH2003US10566

PATIENT
  Age: 48 Year
  Sex: Female
  Weight: 44 kg

DRUGS (8)
  1. GLEEVEC [Suspect]
     Indication: INTESTINAL MASS
     Dosage: 400 MG, QD
     Route: 048
     Dates: start: 20031003
  2. MS CONTIN [Concomitant]
     Indication: PAIN
     Dosage: 30 MG, BID
     Route: 048
  3. VICODIN [Concomitant]
     Indication: PAIN
     Dosage: 1 TABLEG Q4-6H PRN
     Route: 048
  4. METOCLOPRAMIDE [Concomitant]
     Indication: NAUSEA
  5. PROCHLORPERAZINE [Concomitant]
     Indication: NAUSEA
     Dosage: 100 MG, UNK
  6. CIPRO [Concomitant]
     Dosage: 500 MG, BID
  7. PAROXETINE HCL [Concomitant]
     Dosage: 20 MG, QD
  8. PHENERGAN [Concomitant]

REACTIONS (4)
  - NAUSEA [None]
  - PYREXIA [None]
  - VOMITING [None]
  - WHITE BLOOD CELL COUNT INCREASED [None]
